FAERS Safety Report 12243925 (Version 2)
Quarter: 2016Q2

REPORT INFORMATION
  Report Type: Report from Study
  Country: US (occurrence: US)
  Receive Date: 20160406
  Receipt Date: 20160601
  Transmission Date: 20160815
  Serious: No
  Sender: FDA-Public Use
  Company Number: GXBR2016US000972

PATIENT
  Age: 45 Year
  Sex: Female

DRUGS (9)
  1. GLATOPA [Suspect]
     Active Substance: GLATIRAMER ACETATE
     Indication: MULTIPLE SCLEROSIS
     Dosage: 20 MG, QD
     Route: 065
     Dates: start: 20160312
  2. COCONUT OIL [Concomitant]
     Active Substance: COCONUT OIL
     Dosage: UNK DF, UNK
  3. YEAST [Concomitant]
     Active Substance: YEAST
     Dosage: UNK DF, UNK
  4. VITAMIN D [Concomitant]
     Active Substance: CHOLECALCIFEROL
  5. OMEPRAZOLE. [Concomitant]
     Active Substance: OMEPRAZOLE
     Dosage: UNK DF, UNK
  6. LEVOTHYROXINE. [Concomitant]
     Active Substance: LEVOTHYROXINE
     Dosage: UNK DF, UNK
  7. MULTI-VIT [Concomitant]
     Active Substance: VITAMINS
  8. CITALOPRAM [Concomitant]
     Active Substance: CITALOPRAM HYDROBROMIDE
     Dosage: UNK DF, UNK
  9. CYMBALTA [Concomitant]
     Active Substance: DULOXETINE HYDROCHLORIDE
     Dosage: UNK DF, UNK

REACTIONS (3)
  - Injection site urticaria [Not Recovered/Not Resolved]
  - Injection site erythema [Not Recovered/Not Resolved]
  - Injection site pruritus [Not Recovered/Not Resolved]

NARRATIVE: CASE EVENT DATE: 20160312
